FAERS Safety Report 11055777 (Version 4)
Quarter: 2015Q2

REPORT INFORMATION
  Report Type: Spontaneous
  Country: GB (occurrence: GB)
  Receive Date: 20150422
  Receipt Date: 20150521
  Transmission Date: 20150821
  Serious: Yes (Other)
  Sender: FDA-Public Use
  Company Number: GB-TEVA-556017ACC

PATIENT
  Sex: Female

DRUGS (3)
  1. DOMPERIDONE [Interacting]
     Active Substance: DOMPERIDONE
     Indication: IMPAIRED GASTRIC EMPTYING
     Dosage: DOSAGE FORM: UNSPECIFIED
     Route: 065
     Dates: start: 2010
  2. MESALAZINE [Concomitant]
     Active Substance: MESALAMINE
     Indication: CROHN^S DISEASE
     Dosage: DOSAGE FORM: UNSPECIFIED
     Route: 065
  3. ERYTHROMYCIN. [Suspect]
     Active Substance: ERYTHROMYCIN
     Indication: IMPAIRED GASTRIC EMPTYING
     Dosage: DOSAGE FORM: UNSPECIFIED, LOW DOSE
     Route: 065
     Dates: start: 2010, end: 201504

REACTIONS (7)
  - Arrhythmia [Not Recovered/Not Resolved]
  - Dry eye [Not Recovered/Not Resolved]
  - Amenorrhoea [Recovered/Resolved]
  - Drug interaction [Unknown]
  - Dry mouth [Not Recovered/Not Resolved]
  - Malaise [Not Recovered/Not Resolved]
  - Fatigue [Not Recovered/Not Resolved]
